FAERS Safety Report 18677992 (Version 1)
Quarter: 2020Q4

REPORT INFORMATION
  Report Type: Report from Study
  Country: CA (occurrence: CA)
  Receive Date: 20201229
  Receipt Date: 20201229
  Transmission Date: 20210114
  Serious: Yes (Other)
  Sender: FDA-Public Use
  Company Number: CA-NALPROPION PHARMACEUTICALS INC.-2019-008432

PATIENT

DRUGS (9)
  1. PERINDOPRIL [Concomitant]
     Active Substance: PERINDOPRIL
     Indication: HYPERTENSION
     Dosage: 1 IN 1 D
     Route: 048
  2. CONTRAVE [Suspect]
     Active Substance: BUPROPION HYDROCHLORIDE\NALTREXONE HYDROCHLORIDE
     Indication: WEIGHT CONTROL
     Dosage: 90 MILLIGRAM/8 MILLIGRAM, 1 TABLET IN MORNING
     Route: 048
     Dates: start: 20190803, end: 201908
  3. LAMOTRIGINE. [Concomitant]
     Active Substance: LAMOTRIGINE
     Indication: DEPRESSION
     Dosage: NOT FOR SEIZURE (1 IN 1 D)
     Route: 048
  4. CONTRAVE [Suspect]
     Active Substance: BUPROPION HYDROCHLORIDE\NALTREXONE HYDROCHLORIDE
     Dosage: 90 MILLIGRAM/8 MILLIGRAM, 1 TABLET IN MORNING
     Route: 048
     Dates: start: 20190821, end: 20190828
  5. CONTRAVE [Suspect]
     Active Substance: BUPROPION HYDROCHLORIDE\NALTREXONE HYDROCHLORIDE
     Dosage: 90 MILLIGRAM/8 MILLIGRAM, 1 TABLET IN MORNING 1 TABLET IN EVENING
     Route: 048
     Dates: start: 20190829, end: 20190904
  6. CONTRAVE [Suspect]
     Active Substance: BUPROPION HYDROCHLORIDE\NALTREXONE HYDROCHLORIDE
     Dosage: 90 MILLIGRAM/8 MILLIGRAM, 2 TABLETS IN MORNING 1 TABLET IN EVENING
     Route: 048
     Dates: start: 20190905
  7. CONTRAVE [Suspect]
     Active Substance: BUPROPION HYDROCHLORIDE\NALTREXONE HYDROCHLORIDE
     Dosage: 90 MILLIGRAM/8 MILLIGRAM, STARTED APPROX 15/JAN/2020, 2 TABLETS IN MORNING 2 TABLET IN EVENING
     Route: 048
     Dates: start: 20200115
  8. TRINTELLIX [Concomitant]
     Active Substance: VORTIOXETINE HYDROBROMIDE
     Indication: DEPRESSION
     Dosage: 1 IN 1 D
     Route: 048
  9. COVERSYL PLUS                      /06377001/ [Concomitant]
     Indication: HYPERTENSION
     Dosage: 1 IN 1 D
     Route: 048

REACTIONS (27)
  - Arthritis [Unknown]
  - Feeding disorder [Unknown]
  - Mood swings [Unknown]
  - Complication associated with device [Unknown]
  - Bruxism [Unknown]
  - Food craving [Unknown]
  - Hunger [Unknown]
  - Nausea [Recovered/Resolved]
  - Constipation [Recovering/Resolving]
  - Nervousness [Unknown]
  - Fatigue [Unknown]
  - Hot flush [Unknown]
  - Hyperhidrosis [Not Recovered/Not Resolved]
  - Cold sweat [Unknown]
  - Laziness [Not Recovered/Not Resolved]
  - Dry mouth [Not Recovered/Not Resolved]
  - Dehydration [Recovered/Resolved]
  - Abdominal discomfort [Unknown]
  - Chest pain [Unknown]
  - Malaise [Not Recovered/Not Resolved]
  - Therapy interrupted [Unknown]
  - Myocardial infarction [Unknown]
  - Pain [Unknown]
  - Poor quality sleep [Recovering/Resolving]
  - Anxiety [Recovered/Resolved]
  - Headache [Recovered/Resolved]
  - Therapeutic product effect decreased [Unknown]

NARRATIVE: CASE EVENT DATE: 2019
